FAERS Safety Report 5417780-9 (Version None)
Quarter: 2007Q3

REPORT INFORMATION
  Report Type: 
  Country: None (occurrence: None)
  Receive Date: 20070817
  Receipt Date: 20070810
  Transmission Date: 20080115
  Serious: Yes (Other)
  Sender: FDA-Public Use
  Company Number: PHBS2007SE13453

PATIENT
  Sex: Male

DRUGS (8)
  1. DIOVAN [Suspect]
     Indication: ESSENTIAL HYPERTENSION
     Dosage: 80 MG/DAY
     Route: 048
     Dates: start: 20000101, end: 20060206
  2. REMERON [Concomitant]
     Route: 048
  3. FOLACIN [Concomitant]
     Route: 048
  4. PARACETAMOL [Concomitant]
     Route: 048
  5. BEHEPAN [Concomitant]
  6. LEVAXIN [Concomitant]
     Route: 048
  7. CITALOPRAM [Concomitant]
     Route: 048
  8. DESLORATADINE [Concomitant]
     Route: 048

REACTIONS (4)
  - DEPRESSION [None]
  - FATIGUE [None]
  - MYALGIA [None]
  - SUICIDAL IDEATION [None]
